FAERS Safety Report 4825100-3 (Version None)
Quarter: 2005Q4

REPORT INFORMATION
  Report Type: 
  Country: None (occurrence: None)
  Receive Date: 20051109
  Receipt Date: 20051109
  Transmission Date: 20060501
  Serious: Yes (Hospitalization)
  Sender: FDA-Public Use
  Company Number: None

PATIENT
  Age: 89 Year
  Sex: Female

DRUGS (4)
  1. ATENOLOL [Suspect]
     Indication: CORONARY ARTERY DISEASE
     Dosage: 25MG  DAILY   PO
     Route: 048
  2. ATENOLOL [Suspect]
     Indication: MYOCARDIAL INFARCTION
     Dosage: 25MG  DAILY   PO
     Route: 048
  3. DILTIAZEM [Suspect]
     Indication: CORONARY ARTERY DISEASE
     Dosage: 180MG  BID  PO
     Route: 048
  4. DILTIAZEM [Suspect]
     Indication: MYOCARDIAL INFARCTION
     Dosage: 180MG  BID  PO
     Route: 048

REACTIONS (3)
  - DIZZINESS [None]
  - ORTHOSTATIC HYPOTENSION [None]
  - SINUS BRADYCARDIA [None]
